FAERS Safety Report 4889762-7 (Version None)
Quarter: 2006Q1

REPORT INFORMATION
  Report Type: 
  Country: None (occurrence: None)
  Receive Date: 20060124
  Receipt Date: 20050120
  Transmission Date: 20060701
  Serious: Yes (Hospitalization, Other)
  Sender: FDA-Public Use
  Company Number: US-MERCK-0501USA03281

PATIENT
  Age: 58 Year
  Sex: Female
  Weight: 71 kg

DRUGS (2)
  1. VIOXX [Suspect]
     Indication: ARTHRITIS
     Route: 048
     Dates: start: 20020101, end: 20020401
  2. TYLENOL (CAPLET) [Concomitant]
     Route: 065

REACTIONS (5)
  - CORONARY ARTERIAL STENT INSERTION [None]
  - DEPRESSION [None]
  - HEART INJURY [None]
  - MYOCARDIAL INFARCTION [None]
  - NERVOUSNESS [None]
